FAERS Safety Report 19527076 (Version 1)
Quarter: 2021Q3

REPORT INFORMATION
  Report Type: Spontaneous
  Country: US (occurrence: US)
  Receive Date: 20210713
  Receipt Date: 20210713
  Transmission Date: 20211014
  Serious: Yes (Hospitalization)
  Sender: FDA-Public Use
  Company Number: None

PATIENT
  Sex: Female

DRUGS (9)
  1. HUMIRA [Suspect]
     Active Substance: ADALIMUMAB
     Indication: CROHN^S DISEASE
     Dosage: ?          OTHER FREQUENCY:EVERY 2 WEEKS;?
     Route: 058
     Dates: start: 20210127
  2. DOXYCYCL HYC CAP 100MG [Concomitant]
     Dates: start: 20210712
  3. BUPROPION TAB 150MG SR [Concomitant]
     Dates: start: 20210415
  4. GLIPIZIDE ER TAB 10MG [Concomitant]
     Dates: start: 20210626
  5. MONTELUKAST [Concomitant]
     Active Substance: MONTELUKAST SODIUM
     Dates: start: 20210503
  6. ENAPRIL TAB 10MG [Concomitant]
     Dates: start: 20210311
  7. XIGDUO XR TAB 10?1000 [Concomitant]
     Dates: start: 20210602
  8. ATORVASTATIN TAB 80MG [Concomitant]
     Dates: start: 20210304
  9. METOPROL SUC TAB 25MG ER [Concomitant]
     Dates: start: 20210528

REACTIONS (1)
  - Influenza [None]
